FAERS Safety Report 4462238-7 (Version None)
Quarter: 2004Q3

REPORT INFORMATION
  Report Type: 
  Country: None (occurrence: None)
  Receive Date: 20040929
  Receipt Date: 20020903
  Transmission Date: 20050211
  Serious: Yes (Hospitalization, Other)
  Sender: FDA-Public Use
  Company Number: US-GLAXOSMITHKLINE-A0380302A

PATIENT
  Age: 17 Year
  Sex: Male

DRUGS (8)
  1. PAXIL [Suspect]
     Indication: ANXIETY
     Route: 048
     Dates: start: 20001117, end: 20020213
  2. DOXYCYCLINE [Concomitant]
     Indication: ACNE
  3. KLONOPIN [Concomitant]
  4. ALBUTEROL [Concomitant]
     Route: 055
  5. MINOCYCLINE HCL [Concomitant]
     Indication: ACNE
  6. METHACYCLINE [Concomitant]
  7. MEDROL [Concomitant]
     Dates: start: 20010204
  8. BENADRYL [Concomitant]
     Dates: start: 20010204

REACTIONS (21)
  - BALANCE DISORDER [None]
  - CHILLS [None]
  - COUGH [None]
  - DEPENDENCE [None]
  - DIZZINESS [None]
  - DRUG DEPENDENCE [None]
  - DRUG WITHDRAWAL SYNDROME [None]
  - FATIGUE [None]
  - GASTROENTERITIS [None]
  - HEADACHE [None]
  - HYPERHIDROSIS [None]
  - INFLUENZA LIKE ILLNESS [None]
  - NASAL CONGESTION [None]
  - NAUSEA [None]
  - PAIN [None]
  - PYREXIA [None]
  - RHINORRHOEA [None]
  - SYNCOPE [None]
  - TREMOR [None]
  - VOMITING [None]
  - WEIGHT INCREASED [None]
